FAERS Safety Report 5329802-4 (Version None)
Quarter: 2007Q2

REPORT INFORMATION
  Report Type: 
  Country: None (occurrence: None)
  Receive Date: 20070517
  Receipt Date: 20070517
  Transmission Date: 20071010
  Serious: Yes (Other)
  Sender: FDA-Public Use
  Company Number: None

PATIENT
  Age: 48 Year
  Sex: Female
  Weight: 105.6881 kg

DRUGS (1)
  1. VIACTIV - MULTI - VITAMIN FLAVOR GLIDES WOMENS FORMULA [Suspect]
     Indication: VITAMIN SUPPLEMENTATION
     Dosage: 1 TAB WITH FOOD 1 X A DAY
     Dates: start: 20070502, end: 20070505

REACTIONS (4)
  - BACK PAIN [None]
  - BURNING SENSATION [None]
  - DYSPEPSIA [None]
  - MALAISE [None]
